FAERS Safety Report 16320798 (Version 1)
Quarter: 2019Q2

REPORT INFORMATION
  Report Type: Report from Study
  Country: US (occurrence: US)
  Receive Date: 20190516
  Receipt Date: 20190516
  Transmission Date: 20190711
  Serious: Yes (Life-Threatening, Hospitalization, Other)
  Sender: FDA-Public Use
  Company Number: US-BRISTOL-MYERS SQUIBB COMPANY-BMS-2019-046432

PATIENT
  Age: 57 Year
  Sex: Male
  Weight: 171 kg

DRUGS (2)
  1. BLINATUMOMAB [Suspect]
     Active Substance: BLINATUMOMAB
     Indication: ACUTE LYMPHOCYTIC LEUKAEMIA
     Dosage: 168 MICROGRAM
     Route: 042
     Dates: start: 20181205, end: 20181210
  2. NIVOLUMAB [Suspect]
     Active Substance: NIVOLUMAB
     Indication: ACUTE LYMPHOCYTIC LEUKAEMIA
     Dosage: 240 MILLIGRAM
     Route: 042
     Dates: start: 20181205, end: 20181205

REACTIONS (4)
  - Pneumonitis [Unknown]
  - Pneumonia [Unknown]
  - Influenza A virus test positive [Unknown]
  - Pneumonia viral [Unknown]

NARRATIVE: CASE EVENT DATE: 20190118
